FAERS Safety Report 8177143-2 (Version None)
Quarter: 2012Q1

REPORT INFORMATION
  Report Type: 
  Country: None (occurrence: None)
  Receive Date: 20120301
  Receipt Date: 20120221
  Transmission Date: 20120608
  Serious: Yes (Other)
  Sender: FDA-Public Use
  Company Number: JP-GLAXOSMITHKLINE-B0780743A

PATIENT
  Age: 66 Year
  Sex: Male

DRUGS (1)
  1. RANITIDINE HCL [Suspect]
     Route: 048

REACTIONS (6)
  - ELECTROLYTE IMBALANCE [None]
  - URINE OUTPUT INCREASED [None]
  - AMINO ACID LEVEL INCREASED [None]
  - RENAL GLYCOSURIA [None]
  - FANCONI SYNDROME [None]
  - HYPONATRAEMIA [None]
